FAERS Safety Report 9174648 (Version 4)
Quarter: 2013Q3

REPORT INFORMATION
  Report Type: Spontaneous
  Country: GB (occurrence: None)
  Receive Date: 20130315
  Receipt Date: 20130705
  Transmission Date: 20140515
  Serious: Yes (Hospitalization)
  Sender: FDA-Public Use
  Company Number: AUR-APL-2013-02170

PATIENT
  Sex: Female

DRUGS (17)
  1. RAMIPRIL [Suspect]
     Indication: PRODUCT USED FOR UNKNOWN INDICATION
     Dates: end: 20130108
  2. DOXYCIN [Suspect]
     Indication: PRODUCT USED FOR UNKNOWN INDICATION
     Dates: end: 20130108
  3. EXTRANEAL [Suspect]
     Indication: PERITONEAL DIALYSIS
     Route: 033
  4. PHYSIONEAL [Suspect]
     Indication: PERITONEAL DIALYSIS
     Route: 033
  5. ALFACALCIDOL [Concomitant]
  6. BISOPROLOL (BISOPROLOL) [Concomitant]
  7. CINACALCET [Concomitant]
  8. CLOPIDOGREL (CLOPIDOGREL) [Concomitant]
  9. EPREX [Concomitant]
  10. HUMULIN (INSULIN HUMAN) [Concomitant]
  11. HUMULIN S [Concomitant]
  12. LACTULOSE [Concomitant]
  13. LEVOTHYROXINE (LEVOTHYROXINE) [Concomitant]
  14. ROSUVASTATIN (ROSUVASTATIN) [Concomitant]
  15. SALBUTAMOL [Concomitant]
  16. SERETIDE [Concomitant]
  17. SEVELAMER [Concomitant]

REACTIONS (3)
  - Lower respiratory tract infection [None]
  - Blood pressure decreased [None]
  - Asthma [None]
